FAERS Safety Report 9470128 (Version 1)
Quarter: 2013Q3

REPORT INFORMATION
  Report Type: Spontaneous
  Country: US (occurrence: US)
  Receive Date: 20130822
  Receipt Date: 20130822
  Transmission Date: 20140515
  Serious: No
  Sender: FDA-Public Use
  Company Number: US-ASTRAZENECA-2013SE56902

PATIENT
  Age: 62 Year
  Sex: Female
  Weight: 106.6 kg

DRUGS (7)
  1. ARIMIDEX [Suspect]
     Indication: BREAST CANCER FEMALE
     Route: 048
  2. PROZAC [Concomitant]
     Indication: BREAST CANCER FEMALE
     Route: 048
  3. MULTIPLE VITAMIN [Concomitant]
     Indication: SUPPLEMENTATION THERAPY
  4. CALCIUM [Concomitant]
     Indication: SUPPLEMENTATION THERAPY
  5. VITAMIN D 3 [Concomitant]
     Indication: SUPPLEMENTATION THERAPY
  6. PLAVIX [Concomitant]
     Indication: TRANSIENT ISCHAEMIC ATTACK
     Route: 048
  7. RELAFIN [Concomitant]
     Indication: ARTHRITIS
     Route: 048

REACTIONS (7)
  - Hot flush [Not Recovered/Not Resolved]
  - Arthritis [Not Recovered/Not Resolved]
  - Back pain [Not Recovered/Not Resolved]
  - Gout [Not Recovered/Not Resolved]
  - Blood uric acid increased [Not Recovered/Not Resolved]
  - Spider vein [Not Recovered/Not Resolved]
  - Formication [Not Recovered/Not Resolved]
